FAERS Safety Report 20125647 (Version 1)
Quarter: 2021Q4

REPORT INFORMATION
  Report Type: Spontaneous
  Country: US (occurrence: US)
  Receive Date: 20211129
  Receipt Date: 20211129
  Transmission Date: 20220303
  Serious: Yes (Other)
  Sender: FDA-Public Use
  Company Number: US-GLAXOSMITHKLINE-US2021GSK244446

PATIENT
  Sex: Male

DRUGS (16)
  1. ZANTAC [Suspect]
     Active Substance: RANITIDINE HYDROCHLORIDE
     Indication: Abdominal discomfort
     Dosage: 150 MG, QD
     Route: 065
     Dates: start: 198506, end: 201505
  2. ZANTAC [Suspect]
     Active Substance: RANITIDINE HYDROCHLORIDE
     Indication: Hiatus hernia
  3. ZANTAC [Suspect]
     Active Substance: RANITIDINE HYDROCHLORIDE
     Indication: Abdominal discomfort
     Dosage: 150 MG, QD
     Route: 065
     Dates: start: 198506, end: 201505
  4. ZANTAC [Suspect]
     Active Substance: RANITIDINE HYDROCHLORIDE
     Indication: Hiatus hernia
  5. RANITIDINE HYDROCHLORIDE [Suspect]
     Active Substance: RANITIDINE HYDROCHLORIDE
     Indication: Abdominal discomfort
     Dosage: 150 MG, QD
     Route: 065
     Dates: start: 198501, end: 201501
  6. RANITIDINE HYDROCHLORIDE [Suspect]
     Active Substance: RANITIDINE HYDROCHLORIDE
     Indication: Hiatus hernia
  7. RANITIDINE HYDROCHLORIDE [Suspect]
     Active Substance: RANITIDINE HYDROCHLORIDE
     Indication: Abdominal discomfort
     Dosage: 150 MG, QD
     Route: 065
     Dates: start: 198501, end: 201501
  8. RANITIDINE HYDROCHLORIDE [Suspect]
     Active Substance: RANITIDINE HYDROCHLORIDE
     Indication: Hiatus hernia
  9. RANITIDINE HYDROCHLORIDE [Suspect]
     Active Substance: RANITIDINE HYDROCHLORIDE
     Indication: Abdominal discomfort
     Dosage: OTHER, QD
     Route: 065
     Dates: start: 198501, end: 201501
  10. RANITIDINE HYDROCHLORIDE [Suspect]
     Active Substance: RANITIDINE HYDROCHLORIDE
     Indication: Hiatus hernia
  11. RANITIDINE [Suspect]
     Active Substance: RANITIDINE
     Indication: Abdominal discomfort
     Dosage: 150 MG, QD
     Route: 065
     Dates: start: 198501, end: 201501
  12. RANITIDINE [Suspect]
     Active Substance: RANITIDINE
     Indication: Hiatus hernia
  13. RANITIDINE [Suspect]
     Active Substance: RANITIDINE
     Indication: Abdominal discomfort
     Dosage: 150 MG, QD
     Route: 065
     Dates: start: 198501, end: 201501
  14. RANITIDINE [Suspect]
     Active Substance: RANITIDINE
     Indication: Hiatus hernia
  15. ZANTAC [Suspect]
     Active Substance: RANITIDINE HYDROCHLORIDE
     Indication: Abdominal discomfort
     Dosage: OTHER, QD
     Route: 065
     Dates: start: 198501, end: 201501
  16. ZANTAC [Suspect]
     Active Substance: RANITIDINE HYDROCHLORIDE
     Indication: Hiatus hernia

REACTIONS (1)
  - Prostate cancer [Unknown]
